FAERS Safety Report 14281980 (Version 1)
Quarter: 2017Q4

REPORT INFORMATION
  Report Type: Spontaneous
  Country: CA (occurrence: CA)
  Receive Date: 20171213
  Receipt Date: 20171213
  Transmission Date: 20180321
  Serious: Yes (Other)
  Sender: FDA-Public Use
  Company Number: CA-PFIZER INC-2017525776

PATIENT
  Age: 40 Year
  Sex: Female
  Weight: 79.37 kg

DRUGS (2)
  1. ZOLOFT [Suspect]
     Active Substance: SERTRALINE HYDROCHLORIDE
     Dosage: UNK
  2. IMURAN [Suspect]
     Active Substance: AZATHIOPRINE
     Dosage: 175 MG, DAILY

REACTIONS (3)
  - Condition aggravated [Unknown]
  - Uveitis [Unknown]
  - Crohn^s disease [Unknown]
